FAERS Safety Report 25707661 (Version 1)
Quarter: 2025Q3

REPORT INFORMATION
  Report Type: Spontaneous
  Country: EU (occurrence: EU)
  Receive Date: 20250820
  Receipt Date: 20250820
  Transmission Date: 20251021
  Serious: Yes (Hospitalization)
  Sender: MYLAN
  Company Number: None

PATIENT
  Age: 88 Year
  Sex: Male
  Weight: 83.1 kg

DRUGS (16)
  1. PANTOPRAZOLE [Suspect]
     Active Substance: PANTOPRAZOLE
     Indication: Gastrooesophageal reflux disease
     Dosage: 20 MILLIGRAM, QD
     Dates: start: 20250710, end: 20250725
  2. PANTOPRAZOLE [Suspect]
     Active Substance: PANTOPRAZOLE
     Dosage: 20 MILLIGRAM, QD
     Route: 048
     Dates: start: 20250710, end: 20250725
  3. PANTOPRAZOLE [Suspect]
     Active Substance: PANTOPRAZOLE
     Dosage: 20 MILLIGRAM, QD
     Route: 048
     Dates: start: 20250710, end: 20250725
  4. PANTOPRAZOLE [Suspect]
     Active Substance: PANTOPRAZOLE
     Dosage: 20 MILLIGRAM, QD
     Dates: start: 20250710, end: 20250725
  5. TAMSULOSIN [Suspect]
     Active Substance: TAMSULOSIN
     Indication: Prostatic adenoma
     Dosage: 0.4 MILLIGRAM, QD
     Dates: start: 20250710, end: 20250725
  6. TAMSULOSIN [Suspect]
     Active Substance: TAMSULOSIN
     Dosage: 0.4 MILLIGRAM, QD
     Route: 048
     Dates: start: 20250710, end: 20250725
  7. TAMSULOSIN [Suspect]
     Active Substance: TAMSULOSIN
     Dosage: 0.4 MILLIGRAM, QD
     Route: 048
     Dates: start: 20250710, end: 20250725
  8. TAMSULOSIN [Suspect]
     Active Substance: TAMSULOSIN
     Dosage: 0.4 MILLIGRAM, QD
     Dates: start: 20250710, end: 20250725
  9. BACTRIM [Suspect]
     Active Substance: SULFAMETHOXAZOLE\TRIMETHOPRIM
     Indication: Prostatitis
     Dates: start: 20250712, end: 20250715
  10. BACTRIM [Suspect]
     Active Substance: SULFAMETHOXAZOLE\TRIMETHOPRIM
     Route: 048
     Dates: start: 20250712, end: 20250715
  11. BACTRIM [Suspect]
     Active Substance: SULFAMETHOXAZOLE\TRIMETHOPRIM
     Route: 048
     Dates: start: 20250712, end: 20250715
  12. BACTRIM [Suspect]
     Active Substance: SULFAMETHOXAZOLE\TRIMETHOPRIM
     Dates: start: 20250712, end: 20250715
  13. CEFTRIAXONE [Suspect]
     Active Substance: CEFTRIAXONE
     Indication: Prostatitis
     Dates: start: 20250710, end: 20250712
  14. CEFTRIAXONE [Suspect]
     Active Substance: CEFTRIAXONE
     Route: 048
     Dates: start: 20250710, end: 20250712
  15. CEFTRIAXONE [Suspect]
     Active Substance: CEFTRIAXONE
     Route: 048
     Dates: start: 20250710, end: 20250712
  16. CEFTRIAXONE [Suspect]
     Active Substance: CEFTRIAXONE
     Dates: start: 20250710, end: 20250712

REACTIONS (2)
  - Toxic skin eruption [Recovering/Resolving]
  - Eosinophilia [Recovering/Resolving]

NARRATIVE: CASE EVENT DATE: 20250715
